FAERS Safety Report 25046128 (Version 1)
Quarter: 2025Q1

REPORT INFORMATION
  Report Type: Spontaneous
  Country: CA (occurrence: CA)
  Receive Date: 20250306
  Receipt Date: 20250306
  Transmission Date: 20250409
  Serious: Yes (Other)
  Sender: FRESENIUS KABI
  Company Number: CA-FreseniusKabi-FK202503276

PATIENT
  Age: 46 Year
  Sex: Male

DRUGS (2)
  1. IFOSFAMIDE [Suspect]
     Active Substance: IFOSFAMIDE
     Indication: Product used for unknown indication
  2. AKYNZEO [Concomitant]
     Indication: Product used for unknown indication

REACTIONS (8)
  - Agitation [Recovering/Resolving]
  - Anal incontinence [Recovering/Resolving]
  - Brain fog [Recovering/Resolving]
  - Confusional state [Recovering/Resolving]
  - Fall [Recovering/Resolving]
  - Restlessness [Recovering/Resolving]
  - Urinary retention [Recovering/Resolving]
  - Visual impairment [Recovering/Resolving]
